FAERS Safety Report 17193917 (Version 5)
Quarter: 2020Q1

REPORT INFORMATION
  Report Type: Report from Study
  Country: KR (occurrence: KR)
  Receive Date: 20191223
  Receipt Date: 20200220
  Transmission Date: 20200409
  Serious: Yes (Hospitalization)
  Sender: FDA-Public Use
  Company Number: KR-CELLTRION INC.-2019KR024625

PATIENT

DRUGS (57)
  1. TRUXIMA [Suspect]
     Active Substance: RITUXIMAB-ABBS
     Indication: WALDENSTROM^S MACROGLOBULINAEMIA
     Dosage: 375 MG/M2(641MG) (CONCENTRATION: 500MG)
     Route: 042
     Dates: start: 20190903, end: 20190903
  2. DEXAMETHASONE. [Suspect]
     Active Substance: DEXAMETHASONE
     Dosage: UNK
     Route: 042
     Dates: start: 20190903, end: 20191204
  3. DUOLAX [BISACODYL;DOCUSATE SODIUM] [Concomitant]
     Indication: CONSTIPATION PROPHYLAXIS
     Dosage: 2 DOSAGE FORM, QD
     Route: 048
     Dates: start: 20191115, end: 20191203
  4. NORMAL SALINE [Concomitant]
     Active Substance: SODIUM CHLORIDE
     Dosage: 100 ML/BAG, 1 BAG
     Dates: start: 20191215, end: 20191216
  5. EGAFUSIN [Concomitant]
     Dosage: 501 ML QD
     Dates: start: 20191223, end: 20191223
  6. TRESTAN [CARNITINE HYDROCHLORIDE;CYANOCOBALAMIN;CYPROHEPTADINE OROTATE [Concomitant]
     Indication: DECREASED APPETITE
     Dosage: 1CAP BID
     Route: 048
     Dates: start: 20190102
  7. PERAMIFLU [Concomitant]
     Active Substance: PERAMIVIR
     Dosage: 300 MG
     Route: 042
     Dates: start: 20200110, end: 20200110
  8. CRAVIT [Concomitant]
     Active Substance: LEVOFLOXACIN
     Dosage: 750 MG
     Route: 042
     Dates: start: 20200110, end: 20200110
  9. DEXAMETHASONE. [Concomitant]
     Active Substance: DEXAMETHASONE
     Dosage: 35 MG, QD
     Route: 042
     Dates: start: 20191204, end: 20191204
  10. ZOYLEX [ACICLOVIR] [Concomitant]
     Dosage: 400 MG, QD
     Route: 048
     Dates: start: 20191230
  11. COUGH SYRUP [ANTIMONY POTASSIUM TARTRATE;PAPAVER SOMNIFERUM TINCTURE;T [Concomitant]
     Indication: RHINORRHOEA
     Dosage: 20 ML, TID
     Route: 048
     Dates: start: 20191204, end: 20191217
  12. KLENZO [Concomitant]
     Dosage: 1000 ML/BTL
     Dates: start: 20191215, end: 20191215
  13. NEUTROGIN [Concomitant]
     Active Substance: LENOGRASTIM
     Indication: NEUTROPHIL COUNT DECREASED
     Dosage: 250 MCG/ VIAL, 1 VIAL, QD
     Route: 042
     Dates: start: 20191215, end: 20191215
  14. K CONTIN [Concomitant]
     Indication: HYPOKALAEMIA
     Dosage: 1200 MG TID
     Route: 042
     Dates: start: 20191221, end: 20191222
  15. K CONTIN [Concomitant]
     Dosage: 1200 MG QD
     Route: 042
     Dates: start: 20191222, end: 20191222
  16. DEXAMETHASONE. [Concomitant]
     Active Substance: DEXAMETHASONE
     Indication: PREMEDICATION
     Dosage: 35 MG, QD
     Route: 042
     Dates: start: 20191120, end: 20191120
  17. NORMAL SALINE [Concomitant]
     Active Substance: SODIUM CHLORIDE
     Dosage: 100 ML/ BAG, 1 BAG
     Dates: start: 20191215, end: 20191215
  18. PENIRAMIN [Concomitant]
     Dosage: 4 MG/AMP, 1 AMP
     Dates: start: 20191215
  19. LIPIDEM [Concomitant]
     Active Substance: MEDIUM-CHAIN TRIGLYCERIDES\OMEGA-3 FATTY ACIDS\SOYBEAN OIL
     Indication: NUTRITIONAL SUPPLEMENTATION
     Dosage: 1 BTL/ QD
     Route: 042
     Dates: start: 20191216, end: 20191216
  20. LASIX [Concomitant]
     Active Substance: FUROSEMIDE
     Indication: BENIGN PROSTATIC HYPERPLASIA
     Dosage: 20 MG QD
     Route: 042
     Dates: start: 20191222, end: 20191222
  21. KYNEX [Concomitant]
     Active Substance: SULFAMETHOXYPYRIDAZINE
     Indication: PROPHYLAXIS
  22. DENOGAN [Concomitant]
     Active Substance: PROPACETAMOL HYDROCHLORIDE
     Dosage: 2 G
     Route: 042
     Dates: start: 20200110, end: 20200110
  23. DEXAMETHASONE. [Suspect]
     Active Substance: DEXAMETHASONE
     Indication: PRODUCT USED FOR UNKNOWN INDICATION
     Dosage: 35 MG
     Route: 042
     Dates: start: 20190903, end: 20190903
  24. DEXAMETHASONE. [Concomitant]
     Active Substance: DEXAMETHASONE
     Dosage: 35 MG, QD
     Route: 042
     Dates: start: 20191127, end: 20191127
  25. TPN [AMINO ACIDS NOS;CARBOHYDRATES NOS;MINERALS NOS;VITAMINS NOS] [Concomitant]
     Active Substance: AMINO ACIDS\CARBOHYDRATES\MINERALS\VITAMINS
     Dosage: (WNPE10)/LIPID 1 BAG/QD
     Route: 042
     Dates: start: 20191217, end: 20191217
  26. NEUTROGIN [Concomitant]
     Active Substance: LENOGRASTIM
     Indication: NEUTROPHIL COUNT DECREASED
     Dosage: 250 MCG/QD
     Route: 042
     Dates: start: 20191215, end: 20191215
  27. HEXAMEDINE [Concomitant]
     Indication: PERIODONTAL DISEASE
     Dosage: 100 ML PRN GARGLE
     Dates: start: 20191230
  28. NYSTATIN. [Concomitant]
     Active Substance: NYSTATIN
     Indication: PERIODONTAL DISEASE
     Dosage: 5ML TID GARGLE
     Dates: start: 20191230
  29. SUPRAX [Concomitant]
     Active Substance: CEFIXIME
     Indication: PERIODONTAL DISEASE
     Dosage: 100MG BID
     Route: 048
     Dates: start: 20191230
  30. TAZIME [Concomitant]
     Dosage: 4 G
     Route: 042
     Dates: start: 20200110
  31. TRUXIMA [Suspect]
     Active Substance: RITUXIMAB-ABBS
     Dosage: 375 MG/M2(641MG) (CONCENTRATION: 100MG)
     Route: 042
     Dates: start: 20190903, end: 20190903
  32. SETOPEN [Concomitant]
     Dosage: 650 MG, PRN
     Route: 048
     Dates: start: 20191204, end: 20191214
  33. GELMA [Concomitant]
     Indication: GASTRITIS
     Dosage: 10 G, TID
     Route: 048
     Dates: start: 20191120, end: 20191214
  34. TPN [AMINO ACIDS NOS;CARBOHYDRATES NOS;MINERALS NOS;VITAMINS NOS] [Concomitant]
     Active Substance: AMINO ACIDS\CARBOHYDRATES\MINERALS\VITAMINS
     Indication: NUTRITIONAL SUPPLEMENTATION
     Dosage: (COMB10)/LIPID 1 BAG/QD
     Route: 042
     Dates: start: 20191216, end: 20191216
  35. PREPAIN [Concomitant]
     Indication: HAEMORRHOIDS
     Dosage: 28 G/TUBE, QD
     Dates: start: 20191218, end: 20191218
  36. M.V.I. [VITAMINS NOS] [Concomitant]
     Indication: VITAMIN SUPPLEMENTATION
     Dosage: 5 ML QD
     Route: 042
     Dates: start: 20191221, end: 20191222
  37. LASIX [Concomitant]
     Active Substance: FUROSEMIDE
     Dosage: 20 MG QD
     Route: 042
     Dates: start: 20191229, end: 20191229
  38. TRUXIMA [Suspect]
     Active Substance: RITUXIMAB-ABBS
     Dosage: UNK
     Route: 042
     Dates: start: 20190903, end: 20191204
  39. TRUXIMA [Suspect]
     Active Substance: RITUXIMAB-ABBS
     Dosage: 653 MG (BSA 1.74, 375MG/M2.DAY)
     Dates: start: 20200103
  40. LENALID (LENALIDOMIDE) [Suspect]
     Active Substance: LENALIDOMIDE
     Indication: PRODUCT USED FOR UNKNOWN INDICATION
     Dosage: 15 MG
     Route: 048
     Dates: start: 20190903, end: 20190904
  41. STILNOX [Concomitant]
     Active Substance: ZOLPIDEM TARTRATE
     Indication: INSOMNIA
     Dosage: 6.25 MG, QD
     Route: 048
     Dates: start: 20191028, end: 20191214
  42. NORMAL SALINE [Concomitant]
     Active Substance: SODIUM CHLORIDE
     Dosage: 1000 ML/ BAG, 1 BAG
     Dates: start: 20191215
  43. AVODART [Concomitant]
     Active Substance: DUTASTERIDE
     Indication: BENIGN PROSTATIC HYPERPLASIA
     Dosage: 0.5 MG, QD (HS)
     Route: 048
     Dates: start: 20190903, end: 20191214
  44. DUPHALAC EASY [Concomitant]
     Active Substance: LACTULOSE
     Indication: CONSTIPATION
     Dosage: 15 ML, QD
     Route: 048
     Dates: start: 20190903, end: 20191214
  45. EGAFUSIN [Concomitant]
     Indication: NUTRITIONAL SUPPLEMENTATION
     Dosage: 500 ML QD
     Dates: start: 20191220, end: 20191220
  46. EGAFUSIN [Concomitant]
     Dosage: 502 ML QD
     Route: 042
     Dates: start: 20191225, end: 20191225
  47. KYNEX [Concomitant]
     Active Substance: SULFAMETHOXYPYRIDAZINE
     Indication: DRY EYE
     Dosage: 2 0.18% EYE DROP 0.5MLX60EA
     Dates: start: 20191228, end: 20191228
  48. PROTEZOMIB [Suspect]
     Active Substance: BORTEZOMIB
     Indication: PRODUCT USED FOR UNKNOWN INDICATION
     Dosage: 2 MG
     Route: 058
     Dates: start: 20190903, end: 20190903
  49. ASPIRIN. [Concomitant]
     Active Substance: ASPIRIN
     Indication: PROPHYLAXIS
     Dosage: 100 MG, QD
     Route: 048
     Dates: start: 20190903, end: 20191214
  50. ZOYLEX [ACICLOVIR] [Concomitant]
     Indication: ANTIVIRAL PROPHYLAXIS
     Dosage: 400 MG, QD
     Route: 048
     Dates: start: 20190918, end: 20191214
  51. GASTER [Concomitant]
     Active Substance: FAMOTIDINE
     Indication: GASTRITIS
     Dosage: 20 MG, QD
     Route: 048
     Dates: start: 20191016, end: 20191214
  52. MUTERAN [Concomitant]
     Active Substance: ACETYLCYSTEINE
     Indication: PROPHYLAXIS
     Dosage: 200 MG, TID
     Route: 048
     Dates: start: 20191016, end: 20191214
  53. SETOPEN [Concomitant]
     Indication: TOOTHACHE
     Dosage: 650 MG, TID
     Route: 048
     Dates: start: 20191115, end: 20191214
  54. DEXTROSE + NAK [Concomitant]
     Dosage: 10% 1000 ML/BAG, 1 BAG
     Dates: start: 20191215, end: 20191215
  55. NORMAL SALINE [Concomitant]
     Active Substance: SODIUM CHLORIDE
     Dosage: 100 ML/ BAG, 1 BAG
     Dates: start: 20191215, end: 20191215
  56. NORMAL SALINE [Concomitant]
     Active Substance: SODIUM CHLORIDE
     Dosage: 100 ML/ BAG, 1 BAG
     Dates: start: 20191215, end: 20191215
  57. RHINO BB [Concomitant]
     Indication: RHINORRHOEA
     Dosage: 1 CAP QD PO
     Route: 048
     Dates: start: 20191204, end: 20191217

REACTIONS (4)
  - Influenza [Recovered/Resolved]
  - Diverticulitis [Recovered/Resolved]
  - Bacterial infection [Recovered/Resolved]
  - Product use in unapproved indication [Unknown]

NARRATIVE: CASE EVENT DATE: 20190905
